FAERS Safety Report 5424980-0 (Version None)
Quarter: 2007Q3

REPORT INFORMATION
  Report Type: 
  Country: None (occurrence: None)
  Receive Date: 20070824
  Receipt Date: 20070815
  Transmission Date: 20080115
  Serious: Yes (Life-Threatening, Hospitalization, Other)
  Sender: FDA-Public Use
  Company Number: B0484104A

PATIENT
  Age: 24 Year
  Sex: Female

DRUGS (6)
  1. COMBIVIR [Suspect]
     Indication: ANTIVIRAL PROPHYLAXIS
     Dosage: 1TAB TWICE PER DAY
     Route: 048
     Dates: start: 20061117, end: 20070609
  2. NEVIRAPINE [Suspect]
     Indication: ANTIVIRAL PROPHYLAXIS
     Dosage: 200MG SEE DOSAGE TEXT
     Route: 048
     Dates: start: 20061117, end: 20070609
  3. SEPTRIN [Concomitant]
     Dates: start: 20061124
  4. STAVUDINE [Concomitant]
     Dates: start: 20070614
  5. LAMIVUDINE [Concomitant]
     Dates: start: 20070614
  6. EFAVIRENZ [Concomitant]

REACTIONS (16)
  - ANAEMIA [None]
  - ASTHENIA [None]
  - CD4 LYMPHOCYTES DECREASED [None]
  - CHEST PAIN [None]
  - COUGH [None]
  - DEHYDRATION [None]
  - HEADACHE [None]
  - MALAISE [None]
  - NEUTROPENIA [None]
  - NIGHT SWEATS [None]
  - ORAL CANDIDIASIS [None]
  - PALLOR [None]
  - PANCYTOPENIA [None]
  - PULMONARY TUBERCULOSIS [None]
  - PYREXIA [None]
  - WEIGHT DECREASED [None]
